FAERS Safety Report 4276749-0 (Version None)
Quarter: 2004Q1

REPORT INFORMATION
  Report Type: 
  Country: None (occurrence: None)
  Receive Date: 20040120
  Receipt Date: 20040105
  Transmission Date: 20041129
  Serious: No
  Sender: FDA-Public Use
  Company Number: 2004SE00052

PATIENT
  Age: 45 Year
  Sex: Male

DRUGS (14)
  1. ATENOLOL [Suspect]
     Dosage: 50 MG DAILY PO
     Route: 048
     Dates: start: 20031003, end: 20031103
  2. ATENOLOL [Suspect]
     Dosage: 25 MG DAILY PO
     Route: 048
     Dates: start: 20031103
  3. RAMIPRIL [Suspect]
     Dosage: 5 MG DAILY PO
     Route: 048
     Dates: start: 20031003, end: 20031103
  4. ASPIRIN [Suspect]
     Indication: MYOCARDIAL INFARCTION
     Dosage: 150 MG DAILY PO
     Route: 048
     Dates: start: 20030930
  5. NO MATCH [Suspect]
     Indication: MYOCARDIAL INFARCTION
     Dates: start: 20030930, end: 20030930
  6. STREPTOKINASE [Suspect]
     Indication: MYOCARDIAL INFARCTION
     Dosage: 1.5 MG DAILY IV
     Route: 042
     Dates: start: 20030930, end: 20030930
  7. ACTRAPID [Concomitant]
  8. CLOPIDOGREL [Concomitant]
  9. PRAVASTATIN [Concomitant]
  10. AUGMENTIN [Concomitant]
  11. CLEXANE [Concomitant]
  12. ACETAMINOPHEN [Concomitant]
  13. MIDAZOLAM HCL [Concomitant]
  14. POTASSIUM CHLORIDE [Concomitant]

REACTIONS (2)
  - CHEST PAIN [None]
  - DEEP VEIN THROMBOSIS [None]
